FAERS Safety Report 19963662 (Version 1)
Quarter: 2021Q4

REPORT INFORMATION
  Report Type: Spontaneous
  Country: US (occurrence: US)
  Receive Date: 20211018
  Receipt Date: 20211018
  Transmission Date: 20220303
  Serious: Yes (Other)
  Sender: FDA-Public Use
  Company Number: None

PATIENT
  Age: 49 Year
  Sex: Female
  Weight: 92.25 kg

DRUGS (2)
  1. WEGOVY [Suspect]
     Active Substance: SEMAGLUTIDE
     Indication: Obesity
     Dosage: ?          QUANTITY:1 INJECTION(S);OTHER FREQUENCY:1 PER WEEK;OTHER ROUTE:INJECTION IN UPPER ARM
     Dates: start: 20211016, end: 20211016
  2. VITAMIN D [Concomitant]
     Active Substance: VITAMIN D NOS

REACTIONS (6)
  - Vomiting [None]
  - Drug ineffective [None]
  - Vomiting [None]
  - Dehydration [None]
  - Headache [None]
  - Illness [None]

NARRATIVE: CASE EVENT DATE: 20211016
